FAERS Safety Report 19450527 (Version 2)
Quarter: 2022Q3

REPORT INFORMATION
  Report Type: Spontaneous
  Country: US (occurrence: US)
  Receive Date: 20210622
  Receipt Date: 20220729
  Transmission Date: 20221027
  Serious: Yes (Hospitalization, Other)
  Sender: FDA-Public Use
  Company Number: US-LUPIN PHARMACEUTICALS INC.-2021-09920

PATIENT
  Age: 12 Year
  Sex: Male

DRUGS (14)
  1. METRONIDAZOLE [Suspect]
     Active Substance: METRONIDAZOLE
     Indication: Chronic granulomatous disease
     Dosage: UNK
     Route: 065
  2. METRONIDAZOLE [Suspect]
     Active Substance: METRONIDAZOLE
     Indication: Crohn^s disease
     Dosage: 5 MILLIGRAM/KILOGRAM, TID
     Route: 065
  3. METRONIDAZOLE [Suspect]
     Active Substance: METRONIDAZOLE
     Indication: Clostridium difficile infection
  4. PREDNISONE [Concomitant]
     Active Substance: PREDNISONE
     Indication: Chronic granulomatous disease
     Dosage: UNK
     Route: 042
  5. PREDNISONE [Concomitant]
     Active Substance: PREDNISONE
     Indication: Crohn^s disease
  6. VANCOMYCIN [Concomitant]
     Active Substance: VANCOMYCIN
     Indication: Chronic granulomatous disease
     Dosage: UNK
     Route: 065
  7. VANCOMYCIN [Concomitant]
     Active Substance: VANCOMYCIN
     Indication: Crohn^s disease
     Dosage: 250 MILLIGRAM, QID
     Route: 065
  8. VANCOMYCIN [Concomitant]
     Active Substance: VANCOMYCIN
     Indication: Clostridium difficile infection
  9. DOXYCYCLINE [Concomitant]
     Active Substance: DOXYCYCLINE
     Indication: Chronic granulomatous disease
     Dosage: 2 MILLIGRAM/KILOGRAM, BID
     Route: 065
  10. DOXYCYCLINE [Concomitant]
     Active Substance: DOXYCYCLINE
     Indication: Crohn^s disease
  11. AMOXICILLIN [Concomitant]
     Active Substance: AMOXICILLIN
     Indication: Chronic granulomatous disease
     Dosage: 50 MILLIGRAM/KILOGRAM, QD (DIVIDED IN 3 )
     Route: 065
  12. AMOXICILLIN [Concomitant]
     Active Substance: AMOXICILLIN
     Indication: Crohn^s disease
  13. MESALAMINE [Concomitant]
     Active Substance: MESALAMINE
     Indication: Chronic granulomatous disease
     Dosage: UNK
     Route: 065
  14. MESALAMINE [Concomitant]
     Active Substance: MESALAMINE
     Indication: Crohn^s disease

REACTIONS (2)
  - Neurotoxicity [Recovered/Resolved]
  - Toxicity to various agents [Recovered/Resolved]
